FAERS Safety Report 4882590-8 (Version None)
Quarter: 2006Q1

REPORT INFORMATION
  Report Type: 
  Country: None (occurrence: None)
  Receive Date: 20060117
  Receipt Date: 20051007
  Transmission Date: 20060701
  Serious: Yes (Other)
  Sender: FDA-Public Use
  Company Number: US-MERCK-0510USA05755

PATIENT
  Age: 85 Year
  Sex: Female
  Weight: 80 kg

DRUGS (1)
  1. VIOXX [Suspect]
     Indication: PAIN
     Route: 048

REACTIONS (7)
  - ATRIAL FIBRILLATION [None]
  - CARDIAC DISORDER [None]
  - CARDIAC FAILURE CONGESTIVE [None]
  - CARDIOVASCULAR DISORDER [None]
  - CHEST PAIN [None]
  - HEART RATE INCREASED [None]
  - HYPERTENSION [None]
